FAERS Safety Report 6863722-9 (Version None)
Quarter: 2010Q3

REPORT INFORMATION
  Report Type: 
  Country: None (occurrence: None)
  Receive Date: 20100721
  Receipt Date: 20080308
  Transmission Date: 20110219
  Serious: No
  Sender: FDA-Public Use
  Company Number: US-PFIZER INC-2008022195

PATIENT
  Sex: Female
  Weight: 62.7 kg

DRUGS (6)
  1. CHANTIX [Suspect]
     Indication: SMOKING CESSATION THERAPY
     Dates: start: 20071201, end: 20071201
  2. INDERAL [Concomitant]
  3. NORVASC [Concomitant]
  4. LIPITOR [Concomitant]
  5. ACIPHEX [Concomitant]
  6. PLAVIX [Concomitant]

REACTIONS (2)
  - MALAISE [None]
  - NAUSEA [None]
